FAERS Safety Report 10957309 (Version 1)
Quarter: 2015Q1

REPORT INFORMATION
  Report Type: Spontaneous
  Country: US (occurrence: None)
  Receive Date: 20150226
  Receipt Date: 20150226
  Transmission Date: 20150721
  Serious: No
  Sender: FDA-Public Use
  Company Number: TAP2005Q02142

PATIENT
  Age: 70 Year
  Sex: Male
  Weight: 86.2 kg

DRUGS (5)
  1. PREVACID [Suspect]
     Active Substance: LANSOPRAZOLE
     Indication: GASTROOESOPHAGEAL REFLUX DISEASE
     Route: 048
     Dates: start: 2002
  2. LISINOPRIL. [Concomitant]
     Active Substance: LISINOPRIL
  3. TRICOR [Concomitant]
     Active Substance: FENOFIBRATE
  4. FOLIC ACID. [Concomitant]
     Active Substance: FOLIC ACID
  5. XANAX [Concomitant]
     Active Substance: ALPRAZOLAM

REACTIONS (6)
  - Asthenia [None]
  - Dizziness [None]
  - Chest pain [None]
  - Ageusia [None]
  - Dysgeusia [None]
  - Dyspnoea [None]

NARRATIVE: CASE EVENT DATE: 200508
